FAERS Safety Report 9828773 (Version 1)
Quarter: 2014Q1

REPORT INFORMATION
  Report Type: Report from Study
  Country: US (occurrence: US)
  Receive Date: 20140117
  Receipt Date: 20140117
  Transmission Date: 20141002
  Serious: Yes (Death)
  Sender: FDA-Public Use
  Company Number: US-ROCHE-1335589

PATIENT
  Age: 49 Year
  Sex: Female

DRUGS (4)
  1. XELODA [Suspect]
     Indication: BREAST CANCER METASTATIC
     Dosage: 2 WEEKS ON THEN 1 WEEK OFF
     Route: 048
     Dates: start: 201311
  2. ALBUTEROL [Concomitant]
     Route: 055
  3. LORATADINE [Concomitant]
     Indication: HYPERSENSITIVITY
     Route: 048
  4. CHERATUSSIN (UNK INGREDIENTS) [Concomitant]
     Indication: COUGH
     Route: 065

REACTIONS (1)
  - Death [Fatal]
